FAERS Safety Report 5608225-4 (Version None)
Quarter: 2008Q1

REPORT INFORMATION
  Report Type: 
  Country: None (occurrence: None)
  Receive Date: 20080130
  Receipt Date: 20080118
  Transmission Date: 20080703
  Serious: Yes (Other)
  Sender: FDA-Public Use
  Company Number: GB-ELI_LILLY_AND_COMPANY-GB200801003807

PATIENT
  Age: 49 Year
  Sex: Male

DRUGS (1)
  1. HUMALOG MIX 50/50 [Suspect]
     Dosage: 60 IU, 2/D
     Route: 058
     Dates: start: 20071201, end: 20080101

REACTIONS (1)
  - DYSPNOEA [None]
